FAERS Safety Report 8606006-0 (Version None)
Quarter: 2012Q3

REPORT INFORMATION
  Report Type: 
  Country: None (occurrence: None)
  Receive Date: 20120820
  Receipt Date: 19881003
  Transmission Date: 20120928
  Serious: Yes (Death, Other)
  Sender: FDA-Public Use
  Company Number: US-ROCHE-1097608

PATIENT
  Sex: Male

DRUGS (3)
  1. ACTIVASE [Suspect]
     Indication: ACUTE MYOCARDIAL INFARCTION
     Dosage: 6 MG IV PUSH 94 MG ADDED TO IV FLUID
     Route: 042
  2. ISUPREL [Concomitant]
     Dosage: 1 MG IN 250 CC DSW
  3. DOPAMINE HCL [Concomitant]
     Dosage: 400 MGS IN 500 CC D5W

REACTIONS (4)
  - ARRHYTHMIA [None]
  - RESPIRATORY ARREST [None]
  - CARDIOGENIC SHOCK [None]
  - ENDOTRACHEAL INTUBATION [None]
